FAERS Safety Report 10696974 (Version 2)
Quarter: 2015Q1

REPORT INFORMATION
  Report Type: Report from Study
  Country: US (occurrence: US)
  Receive Date: 20150108
  Receipt Date: 20150327
  Transmission Date: 20150721
  Serious: Yes (Hospitalization, Other)
  Sender: FDA-Public Use
  Company Number: US-BIOGENIDEC-2015BI001010

PATIENT
  Age: 45 Year
  Sex: Male

DRUGS (1)
  1. TYSABRI [Suspect]
     Active Substance: NATALIZUMAB
     Indication: MULTIPLE SCLEROSIS
     Route: 042
     Dates: start: 20081117

REACTIONS (14)
  - Osteomyelitis [Not Recovered/Not Resolved]
  - Injection site haemorrhage [Recovered/Resolved]
  - Drug delivery device removal [Recovered/Resolved]
  - Pain [Recovered/Resolved]
  - Foot fracture [Recovered/Resolved]
  - Nail infection [Recovered/Resolved]
  - Femur fracture [Recovered/Resolved]
  - Fall [Recovered/Resolved]
  - Infection [Recovered/Resolved]
  - Sepsis [Not Recovered/Not Resolved]
  - Memory impairment [Recovered/Resolved]
  - Peripheral swelling [Recovered/Resolved]
  - Streptococcal infection [Unknown]
  - Skin discolouration [Recovered/Resolved]

NARRATIVE: CASE EVENT DATE: 2010
